FAERS Safety Report 24137411 (Version 1)
Quarter: 2024Q3

REPORT INFORMATION
  Report Type: Spontaneous
  Country: CN (occurrence: CN)
  Receive Date: 20240725
  Receipt Date: 20240725
  Transmission Date: 20241017
  Serious: Yes (Other)
  Sender: SANDOZ
  Company Number: CN-002147023-NVSC2024CN151778

PATIENT

DRUGS (2)
  1. PATANOL [Suspect]
     Active Substance: OLOPATADINE HYDROCHLORIDE
     Indication: Inflammation
     Dosage: UNK
     Route: 065
  2. TOBREX [Suspect]
     Active Substance: TOBRAMYCIN
     Indication: Inflammation
     Dosage: UNK
     Route: 065

REACTIONS (4)
  - Xerophthalmia [Unknown]
  - Ocular discomfort [Unknown]
  - Dry eye [Unknown]
  - Drug ineffective [Recovered/Resolved]
